FAERS Safety Report 6763855-1 (Version None)
Quarter: 2010Q2

REPORT INFORMATION
  Report Type: 
  Country: None (occurrence: None)
  Receive Date: 20100610
  Receipt Date: 20100608
  Transmission Date: 20101027
  Serious: Yes (Death, Life-Threatening, Hospitalization)
  Sender: FDA-Public Use
  Company Number: IT-BRISTOL-MYERS SQUIBB COMPANY-15126493

PATIENT
  Age: 54 Year
  Sex: Female

DRUGS (1)
  1. IXABEPILONE [Suspect]
     Indication: BREAST CANCER
     Route: 042
     Dates: start: 20100504, end: 20100519

REACTIONS (9)
  - ANAEMIA [None]
  - COMA [None]
  - DIARRHOEA [None]
  - DYSPNOEA [None]
  - FEBRILE NEUTROPENIA [None]
  - HYPOTENSION [None]
  - MULTI-ORGAN FAILURE [None]
  - STOMATITIS [None]
  - THROMBOCYTOPENIA [None]
